FAERS Safety Report 25996958 (Version 1)
Quarter: 2025Q4

REPORT INFORMATION
  Report Type: Report from Study
  Country: US (occurrence: None)
  Receive Date: 20251104
  Receipt Date: 20251104
  Transmission Date: 20260118
  Serious: Yes (Hospitalization)
  Sender: UCB
  Company Number: US-UCBSA-2025055564

PATIENT
  Age: 30 Year

DRUGS (1)
  1. BIMEKIZUMAB [Suspect]
     Active Substance: BIMEKIZUMAB
     Indication: Hidradenitis
     Dosage: 320 MILLIGRAM/2ML, EV 2 WEEKS(QOW)

REACTIONS (6)
  - Appendicitis perforated [Recovering/Resolving]
  - Cholelithiasis [Recovering/Resolving]
  - Cholecystectomy [Recovering/Resolving]
  - Appendicectomy [Recovering/Resolving]
  - Drain removal [Recovering/Resolving]
  - Burning sensation [Recovered/Resolved]
